FAERS Safety Report 14421618 (Version 1)
Quarter: 2018Q1

REPORT INFORMATION
  Report Type: Other
  Country: US (occurrence: US)
  Receive Date: 20180122
  Receipt Date: 20180122
  Transmission Date: 20180509
  Serious: No
  Sender: FDA-Public Use
  Company Number: US-INTERCEPT-PMOCA2017001115

PATIENT

DRUGS (3)
  1. URSO [Concomitant]
     Active Substance: URSODIOL
  2. OCALIVA [Suspect]
     Active Substance: OBETICHOLIC ACID
     Indication: PRIMARY BILIARY CHOLANGITIS
     Dosage: 5 MG, QD
     Route: 065
     Dates: start: 20160615
  3. OCALIVA [Suspect]
     Active Substance: OBETICHOLIC ACID
     Dosage: 10 MG, QD
     Route: 048
     Dates: end: 20171010

REACTIONS (8)
  - Abdominal pain upper [Recovered/Resolved]
  - Pruritus [Not Recovered/Not Resolved]
  - Sensory loss [Not Recovered/Not Resolved]
  - Memory impairment [Not Recovered/Not Resolved]
  - Blood alkaline phosphatase increased [Unknown]
  - Neuralgia [Not Recovered/Not Resolved]
  - Peripheral swelling [Recovering/Resolving]
  - Abdominal distension [Recovering/Resolving]

NARRATIVE: CASE EVENT DATE: 201705
